FAERS Safety Report 5215922-1 (Version None)
Quarter: 2007Q1

REPORT INFORMATION
  Report Type: 
  Country: None (occurrence: None)
  Receive Date: 20070123
  Receipt Date: 20070111
  Transmission Date: 20070707
  Serious: Yes (Hospitalization)
  Sender: FDA-Public Use
  Company Number: FR-GILEAD-2007-0011016

PATIENT
  Age: 43 Year
  Sex: Male
  Weight: 65 kg

DRUGS (16)
  1. DAUNOXOME [Suspect]
     Indication: KAPOSI'S SARCOMA
     Route: 042
     Dates: start: 20060913, end: 20060913
  2. NEUPOGEN [Suspect]
     Route: 058
     Dates: start: 20060913, end: 20060916
  3. NEUPOGEN [Suspect]
     Route: 058
     Dates: start: 20060919, end: 20060924
  4. ZELITREX [Concomitant]
     Indication: HERPES VIRUS INFECTION
     Route: 048
     Dates: start: 20060914, end: 20060914
  5. ZELITREX [Concomitant]
     Route: 048
     Dates: start: 20060915, end: 20060915
  6. PERFALGAN [Concomitant]
     Indication: PYREXIA
     Route: 042
     Dates: start: 20060922, end: 20060922
  7. EPIVIR [Concomitant]
     Indication: HIV INFECTION
     Route: 048
  8. NORVIR [Concomitant]
     Indication: HIV INFECTION
     Route: 048
  9. TMC114 [Concomitant]
     Indication: HIV INFECTION
     Dates: start: 20050301
  10. ZIAGEN [Concomitant]
     Route: 048
  11. BACTRIM [Concomitant]
     Dates: start: 20050901
  12. NOXAFIL [Concomitant]
     Route: 048
     Dates: start: 20050901
  13. RIMIFON [Concomitant]
     Indication: MYCOBACTERIAL INFECTION
     Route: 048
     Dates: start: 20060301
  14. MOXIFLOXACIN HYDROCHLORIDE [Concomitant]
     Indication: MYCOBACTERIAL INFECTION
     Route: 048
     Dates: start: 20060301
  15. MYAMBUTOL [Concomitant]
     Indication: MYCOBACTERIAL INFECTION
     Route: 048
     Dates: start: 20060301
  16. NEORECORMON [Concomitant]

REACTIONS (2)
  - BLOOD ALKALINE PHOSPHATASE INCREASED [None]
  - GAMMA-GLUTAMYLTRANSFERASE INCREASED [None]
